FAERS Safety Report 22314735 (Version 1)
Quarter: 2023Q2

REPORT INFORMATION
  Report Type: Spontaneous
  Country: US (occurrence: None)
  Receive Date: 20230511
  Receipt Date: 20230511
  Transmission Date: 20230722
  Serious: No
  Sender: FDA-Public Use
  Company Number: None

PATIENT
  Sex: Female

DRUGS (2)
  1. GATTEX [Suspect]
     Active Substance: TEDUGLUTIDE\WATER
     Indication: Malabsorption
     Dosage: OTHER QUANTITY : 0.11 ML;?FREQUENCY : DAILY;?
     Route: 058
     Dates: start: 202303
  2. GATTEX [Suspect]
     Active Substance: TEDUGLUTIDE\WATER
     Indication: Post procedural complication

REACTIONS (2)
  - Injection site bruising [None]
  - Product solubility abnormal [None]
